FAERS Safety Report 7500946-1 (Version None)
Quarter: 2011Q2

REPORT INFORMATION
  Report Type: 
  Country: None (occurrence: None)
  Receive Date: 20110524
  Receipt Date: 20110511
  Transmission Date: 20111010
  Serious: Yes (Hospitalization, Other)
  Sender: FDA-Public Use
  Company Number: US-ELI_LILLY_AND_COMPANY-US201105003830

PATIENT
  Sex: Male
  Weight: 74.83 kg

DRUGS (6)
  1. OLANZAPINE [Suspect]
     Indication: SCHIZOAFFECTIVE DISORDER
     Dosage: UNK
     Route: 030
     Dates: start: 20101221
  2. OLANZAPINE [Suspect]
     Dosage: UNK
     Dates: start: 20110413
  3. OLANZAPINE [Suspect]
     Dosage: UNK
     Route: 030
     Dates: start: 20110315
  4. OLANZAPINE [Suspect]
     Dosage: UNK
     Route: 030
     Dates: start: 20110118
  5. OLANZAPINE [Suspect]
     Dosage: UNK
     Route: 030
     Dates: start: 20110215
  6. OLANZAPINE [Suspect]
     Dosage: UNK
     Route: 030
     Dates: start: 20110511

REACTIONS (11)
  - ANXIETY [None]
  - AGITATION [None]
  - TACHYCARDIA [None]
  - DIZZINESS [None]
  - CONFUSIONAL STATE [None]
  - DISORIENTATION [None]
  - NEUROLEPTIC MALIGNANT SYNDROME [None]
  - SENSORY DISTURBANCE [None]
  - DYSKINESIA [None]
  - DELIRIUM [None]
  - DYSARTHRIA [None]
